FAERS Safety Report 8849467 (Version 1)
Quarter: 2012Q4

REPORT INFORMATION
  Report Type: 
  Country: US (occurrence: US)
  Receive Date: 20121019
  Receipt Date: 20121019
  Transmission Date: 20130627
  Serious: Yes (Hospitalization)
  Sender: FDA-Public Use
  Company Number: US-GENZYME-FABR-1002796

PATIENT
  Age: 35 Year
  Sex: Female
  Weight: 105 kg

DRUGS (1)
  1. FABRAZYME [Suspect]
     Indication: FABRY^S DISEASE
     Dosage: 1 mg/kg, q2w
     Route: 042
     Dates: start: 20070920

REACTIONS (1)
  - Sepsis [Not Recovered/Not Resolved]
